FAERS Safety Report 13320173 (Version 1)
Quarter: 2017Q1

REPORT INFORMATION
  Report Type: Spontaneous
  Country: HU (occurrence: HU)
  Receive Date: 20170310
  Receipt Date: 20170310
  Transmission Date: 20170428
  Serious: Yes (Death, Other)
  Sender: FDA-Public Use
  Company Number: HU-BRISTOL-MYERS SQUIBB COMPANY-BMS-2017-014932

PATIENT
  Age: 58 Year
  Sex: Male

DRUGS (1)
  1. OPDIVO [Suspect]
     Active Substance: NIVOLUMAB
     Indication: NON-SMALL CELL LUNG CANCER
     Dosage: 360 MG, Q2WK
     Route: 042
     Dates: start: 201612, end: 20170202

REACTIONS (4)
  - Death [Fatal]
  - Respiratory failure [Not Recovered/Not Resolved]
  - Acute kidney injury [Unknown]
  - Pneumonitis [Unknown]
